FAERS Safety Report 5162637-4 (Version None)
Quarter: 2006Q4

REPORT INFORMATION
  Report Type: 
  Country: None (occurrence: None)
  Receive Date: 20061201
  Receipt Date: 20050602
  Transmission Date: 20070319
  Serious: Yes (Disabling, Other)
  Sender: FDA-Public Use
  Company Number: DEWYE714002JUN05

PATIENT
  Age: 44 Year
  Sex: Male

DRUGS (8)
  1. ENBREL [Suspect]
     Indication: RHEUMATOID ARTHRITIS
     Dosage: UNKNOWN
     Route: 058
     Dates: start: 20050301, end: 20060801
  2. METHOTREXATE [Suspect]
     Indication: RHEUMATOID ARTHRITIS
     Route: 051
     Dates: start: 20040701
  3. ARAVA [Concomitant]
     Dosage: UNKNOWN
     Route: 048
     Dates: start: 20041101, end: 20050201
  4. OXYCODONE HCL [Concomitant]
     Dosage: UNKNOWN
     Route: 048
     Dates: start: 20030701
  5. FOLIC ACID [Concomitant]
     Route: 048
  6. CALCIUM [Concomitant]
  7. COLECALCIFEROL [Concomitant]
  8. PREDNISOLONE [Concomitant]
     Route: 048

REACTIONS (4)
  - GINGIVAL RECESSION [None]
  - LOOSE TOOTH [None]
  - PERIODONTITIS [None]
  - TOOTH EXTRACTION [None]
